FAERS Safety Report 5611132-4 (Version None)
Quarter: 2008Q1

REPORT INFORMATION
  Report Type: 
  Country: None (occurrence: None)
  Receive Date: 20080129
  Receipt Date: 20080118
  Transmission Date: 20080703
  Serious: Yes (Disabling, Other)
  Sender: FDA-Public Use
  Company Number: 2008SP001584

PATIENT
  Age: 52 Year
  Sex: Female

DRUGS (5)
  1. RIBAVIRIN [Suspect]
     Indication: HEPATITIS C
     Dosage: PO
     Route: 048
     Dates: start: 20071130, end: 20080118
  2. PEG-INTRON [Suspect]
     Indication: HEPATITIS C
     Dosage: SC
     Route: 058
     Dates: start: 20071130, end: 20080118
  3. PAXIL [Concomitant]
  4. HYZAAR [Concomitant]
  5. CATAPRES [Concomitant]

REACTIONS (12)
  - ABDOMINAL PAIN UPPER [None]
  - ANXIETY [None]
  - BLOOD PRESSURE INCREASED [None]
  - DISORIENTATION [None]
  - FLIGHT OF IDEAS [None]
  - HEART RATE INCREASED [None]
  - MANIA [None]
  - MEMORY IMPAIRMENT [None]
  - ORAL INTAKE REDUCED [None]
  - PARANOIA [None]
  - SLEEP DISORDER [None]
  - THINKING ABNORMAL [None]
